FAERS Safety Report 5909185-9 (Version None)
Quarter: 2008Q4

REPORT INFORMATION
  Report Type: 
  Country: None (occurrence: None)
  Receive Date: 20081006
  Receipt Date: 20080926
  Transmission Date: 20090506
  Serious: Yes (Other)
  Sender: FDA-Public Use
  Company Number: PHHY2008SK23245

PATIENT
  Age: 74 Year
  Sex: Male

DRUGS (6)
  1. RASILEZ [Suspect]
     Indication: HYPERTENSION
     Dosage: 300 MG, QD
     Dates: start: 20080401
  2. PRESTARIUM [Concomitant]
  3. AMLOPIN [Concomitant]
     Dosage: 10 MG, UNK
  4. BETALOC ZOK ^ASTRA^ [Concomitant]
     Dosage: 100 MG, UNK
  5. MILURIT [Concomitant]
     Dosage: 100 MG, UNK
  6. TICLOPIDINE HCL [Concomitant]

REACTIONS (2)
  - BUNDLE BRANCH BLOCK RIGHT [None]
  - HYPOPERFUSION [None]
